FAERS Safety Report 20211629 (Version 1)
Quarter: 2021Q4

REPORT INFORMATION
  Report Type: Spontaneous
  Country: US (occurrence: None)
  Receive Date: 20211220
  Receipt Date: 20211220
  Transmission Date: 20220304
  Serious: No
  Sender: FDA-Public Use
  Company Number: None

PATIENT
  Age: 70 Year
  Sex: Female
  Weight: 22.0 kg

DRUGS (1)
  1. CARBOPLATIN [Suspect]
     Active Substance: CARBOPLATIN
     Indication: Oesophageal carcinoma
     Dosage: FREQUENCY : EVERY THREE WEEKS;?
     Route: 042
     Dates: start: 20211014

REACTIONS (6)
  - Dyspnoea [None]
  - Oxygen saturation decreased [None]
  - Pruritus [None]
  - Feeling jittery [None]
  - Rash [None]
  - Rash [None]

NARRATIVE: CASE EVENT DATE: 20211213
